FAERS Safety Report 10206615 (Version 8)
Quarter: 2015Q3

REPORT INFORMATION
  Report Type: Spontaneous
  Country: US (occurrence: US)
  Receive Date: 20140530
  Receipt Date: 20150928
  Transmission Date: 20151125
  Serious: Yes (Hospitalization, Other)
  Sender: FDA-Public Use
  Company Number: US-GLAXOSMITHKLINE-A1066396A

PATIENT
  Age: 44 Year
  Sex: Female

DRUGS (7)
  1. FLOLAN [Suspect]
     Active Substance: EPOPROSTENOL SODIUM
     Indication: COR PULMONALE CHRONIC
     Dosage: 55 NG/KG/MIN, 90,000 NG/ML
     Route: 065
     Dates: start: 20060609
  2. FLOLAN [Suspect]
     Active Substance: EPOPROSTENOL SODIUM
     Indication: PULMONARY HYPERTENSION
     Dosage: UNK
     Dates: start: 20060609
  3. FLOLAN [Suspect]
     Active Substance: EPOPROSTENOL SODIUM
     Dosage: UNK, CO
  4. FLOLAN [Suspect]
     Active Substance: EPOPROSTENOL SODIUM
     Dosage: 55 NG/KG/MIN, 90,000 NG/ML, CO
     Route: 042
  5. FLOLAN [Suspect]
     Active Substance: EPOPROSTENOL SODIUM
     Dosage: 55 NG/KG/MIN
  6. COUMADIN [Concomitant]
     Active Substance: WARFARIN SODIUM
  7. TRACLEER [Concomitant]
     Active Substance: BOSENTAN
     Dates: start: 20100104

REACTIONS (9)
  - Pancreatitis [Unknown]
  - Headache [Recovered/Resolved]
  - Cholecystectomy [Unknown]
  - Cholelithiasis [Unknown]
  - Gallbladder operation [Unknown]
  - Pancreatic operation [Unknown]
  - Hospitalisation [Unknown]
  - Upper respiratory tract infection [Unknown]
  - Sinusitis [Unknown]

NARRATIVE: CASE EVENT DATE: 20150420
